FAERS Safety Report 8993000 (Version 1)
Quarter: 2013Q1

REPORT INFORMATION
  Report Type: Spontaneous
  Country: US (occurrence: US)
  Receive Date: 20130102
  Receipt Date: 20130102
  Transmission Date: 20140127
  Serious: Yes (Other)
  Sender: FDA-Public Use
  Company Number: PHEH2012US023048

PATIENT
  Age: 61 Year
  Sex: Male

DRUGS (1)
  1. TASIGNA [Suspect]
     Indication: CHRONIC MYELOID LEUKAEMIA
     Dosage: 200 MG, BID
     Route: 048
     Dates: start: 20120801, end: 20120914

REACTIONS (4)
  - Uveitis [Recovered/Resolved]
  - Abnormal dreams [Unknown]
  - Dyspepsia [Recovered/Resolved]
  - Rash generalised [Recovered/Resolved]
